FAERS Safety Report 5273022-9 (Version None)
Quarter: 2007Q1

REPORT INFORMATION
  Report Type: 
  Country: None (occurrence: None)
  Receive Date: 20070322
  Receipt Date: 20070313
  Transmission Date: 20070707
  Serious: Yes (Hospitalization)
  Sender: FDA-Public Use
  Company Number: US-PFIZER INC-2006064267

PATIENT
  Sex: Female
  Weight: 112.9 kg

DRUGS (11)
  1. SUTENT [Suspect]
     Indication: BREAST CANCER
     Route: 048
  2. ZOLOFT [Concomitant]
     Route: 048
  3. KLONOPIN [Concomitant]
     Route: 048
  4. PERCOCET [Concomitant]
     Route: 048
  5. SYNTHROID [Concomitant]
     Route: 048
  6. ZOMETA [Concomitant]
     Route: 042
  7. ACETAMINOPHEN [Concomitant]
     Route: 048
  8. IBUPROFEN [Concomitant]
     Route: 048
  9. MAGIC MOUTHWASH [Concomitant]
     Route: 048
  10. CLOTRIMAZOLE [Concomitant]
     Route: 061
  11. DIFLUCAN [Concomitant]
     Route: 048

REACTIONS (3)
  - ABDOMINAL DISCOMFORT [None]
  - ANOREXIA [None]
  - FAILURE TO THRIVE [None]
